FAERS Safety Report 4907524-9 (Version None)
Quarter: 2006Q1

REPORT INFORMATION
  Report Type: 
  Country: None (occurrence: None)
  Receive Date: 20060210
  Receipt Date: 20060106
  Transmission Date: 20060701
  Serious: Yes (Death, Hospitalization, Disabling)
  Sender: FDA-Public Use
  Company Number: US-MERCK-0601USA00820

PATIENT
  Age: 46 Year
  Sex: Male
  Weight: 100 kg

DRUGS (10)
  1. VIOXX [Suspect]
     Route: 048
     Dates: start: 20020508, end: 20040128
  2. GLUCOPHAGE XR [Concomitant]
     Route: 065
  3. PHENYTOIN [Concomitant]
     Route: 065
  4. ENALAPRIL MALEATE [Concomitant]
     Route: 065
  5. AMARYL [Concomitant]
     Route: 065
  6. ALLEGRA [Concomitant]
     Route: 065
  7. ZOCOR [Concomitant]
     Route: 048
  8. ASPIRIN [Concomitant]
     Route: 065
  9. XANTHOPHYLL [Concomitant]
     Route: 065
  10. LEXAPRO [Concomitant]
     Route: 065

REACTIONS (5)
  - CORONARY ARTERY DISEASE [None]
  - DEPRESSION [None]
  - INTERVERTEBRAL DISC PROTRUSION [None]
  - MYOCARDIAL INFARCTION [None]
  - ROAD TRAFFIC ACCIDENT [None]
